FAERS Safety Report 21473062 (Version 1)
Quarter: 2022Q4

REPORT INFORMATION
  Report Type: Spontaneous
  Country: US (occurrence: None)
  Receive Date: 20221017
  Receipt Date: 20221017
  Transmission Date: 20230113
  Serious: No
  Sender: FDA-Public Use
  Company Number: None

PATIENT
  Sex: Female

DRUGS (2)
  1. GLATIRAMER [Suspect]
     Active Substance: GLATIRAMER
     Indication: Multiple sclerosis
     Dosage: FREQUENCY : 3 TIMES A WEEK;?
     Route: 058
     Dates: start: 20210720
  2. GLATIRAMER [Suspect]
     Active Substance: GLATIRAMER
     Dosage: OTHER QUANTITY : 1 SYRINGE;?FREQUENCY : 3 TIMES A WEEK;?
     Route: 058

REACTIONS (2)
  - Product dose omission issue [None]
  - Shoulder operation [None]
